FAERS Safety Report 17959387 (Version 1)
Quarter: 2020Q2

REPORT INFORMATION
  Report Type: Spontaneous
  Country: DK (occurrence: DK)
  Receive Date: 20200630
  Receipt Date: 20200630
  Transmission Date: 20200714
  Serious: Yes (Death, Other)
  Sender: FDA-Public Use
  Company Number: DK-LUPIN PHARMACEUTICALS INC.-2020-02990

PATIENT
  Age: 80 Year

DRUGS (1)
  1. CEFUROXIME. [Suspect]
     Active Substance: CEFUROXIME
     Indication: EVIDENCE BASED TREATMENT
     Dosage: 750 MILLIGRAM, TID
     Route: 042

REACTIONS (4)
  - Condition aggravated [Fatal]
  - Therapeutic product effect incomplete [Fatal]
  - Septic shock [Fatal]
  - Drug resistance [Fatal]
